FAERS Safety Report 7215032-8 (Version None)
Quarter: 2011Q1

REPORT INFORMATION
  Report Type: 
  Country: None (occurrence: None)
  Receive Date: 20110107
  Receipt Date: 20100716
  Transmission Date: 20110831
  Serious: No
  Sender: FDA-Public Use
  Company Number: A0870835A

PATIENT
  Age: 55 Year
  Sex: Male

DRUGS (6)
  1. LOVAZA [Suspect]
     Dosage: 2CAP TWICE PER DAY
     Route: 048
     Dates: start: 20100515
  2. LOVAZA [Concomitant]
  3. SIMVASTATIN [Concomitant]
  4. VIAGRA [Concomitant]
  5. ASPIRIN [Concomitant]
  6. GARLIC SUPPLEMENT [Concomitant]

REACTIONS (1)
  - DYSGEUSIA [None]
